FAERS Safety Report 24545827 (Version 1)
Quarter: 2024Q4

REPORT INFORMATION
  Report Type: Spontaneous
  Country: GB (occurrence: GB)
  Receive Date: 20241024
  Receipt Date: 20241024
  Transmission Date: 20250115
  Serious: Yes (Hospitalization)
  Sender: VIFOR (INTERNATIONAL) INC.
  Company Number: None

PATIENT
  Age: 62 Year
  Sex: Female
  Weight: 96 kg

DRUGS (1)
  1. MIRCERA [Suspect]
     Active Substance: METHOXY POLYETHYLENE GLYCOL-EPOETIN BETA
     Indication: Product used for unknown indication
     Dosage: 50 MCG S/C EVERY 4 WEEKS
     Route: 058
     Dates: start: 20240905, end: 20241002

REACTIONS (1)
  - Pulmonary embolism [Recovered/Resolved]

NARRATIVE: CASE EVENT DATE: 20240920
